FAERS Safety Report 14769472 (Version 1)
Quarter: 2018Q2

REPORT INFORMATION
  Report Type: Report from Study
  Country: JP (occurrence: JP)
  Receive Date: 20180417
  Receipt Date: 20180417
  Transmission Date: 20180711
  Serious: Yes (Hospitalization, Other)
  Sender: FDA-Public Use
  Company Number: PHHY2010JP097886

PATIENT
  Age: 65 Year
  Sex: Female
  Weight: 57 kg

DRUGS (5)
  1. DECADRON [Concomitant]
     Active Substance: DEXAMETHASONE
     Indication: DIZZINESS
     Route: 048
     Dates: start: 20090702, end: 20090730
  2. TYKERB [Suspect]
     Active Substance: LAPATINIB DITOSYLATE
     Dosage: 1000 MG,
     Route: 048
     Dates: start: 20090731, end: 20091001
  3. XELODA [Suspect]
     Active Substance: CAPECITABINE
     Indication: PRODUCT USED FOR UNKNOWN INDICATION
     Dosage: 3000 MG,
     Route: 048
     Dates: start: 20090623, end: 20090706
  4. TYKERB [Suspect]
     Active Substance: LAPATINIB DITOSYLATE
     Indication: BREAST CANCER
     Dosage: 1250 MG,
     Route: 048
     Dates: start: 20090623, end: 20090730
  5. XELODA [Suspect]
     Active Substance: CAPECITABINE
     Dosage: 2400 MG,
     Route: 048
     Dates: start: 20090716, end: 20090914

REACTIONS (6)
  - Malaise [Recovering/Resolving]
  - Diarrhoea [Recovered/Resolved]
  - Dizziness [Unknown]
  - Hepatic function abnormal [Not Recovered/Not Resolved]
  - Palmar-plantar erythrodysaesthesia syndrome [Recovering/Resolving]
  - Abdominal pain upper [Recovered/Resolved]

NARRATIVE: CASE EVENT DATE: 20090624
